FAERS Safety Report 16646193 (Version 1)
Quarter: 2019Q3

REPORT INFORMATION
  Report Type: Spontaneous
  Country: IT (occurrence: IT)
  Receive Date: 20190730
  Receipt Date: 20190730
  Transmission Date: 20191004
  Serious: Yes (Other)
  Sender: FDA-Public Use
  Company Number: IT-SUN PHARMACEUTICAL INDUSTRIES LTD-2019RR-215662

PATIENT
  Age: 62 Year
  Sex: Female

DRUGS (3)
  1. LEVOFOLENE 175 MG POLVERE PER SOLUZIONE PER INFUSIONE [Concomitant]
     Indication: RECTAL ADENOCARCINOMA
     Route: 042
     Dates: start: 20190211, end: 20190617
  2. OXALIPLATINO SUN 5 MG/ML, CONCENTRATO PER SOLUZIONE PER INFUSIONE [Suspect]
     Active Substance: OXALIPLATIN
     Indication: RECTAL ADENOCARCINOMA
     Dosage: CYCLICAL
     Route: 042
     Dates: start: 20190211, end: 20190617
  3. FLUOROURACIL. [Concomitant]
     Active Substance: FLUOROURACIL
     Indication: RECTAL ADENOCARCINOMA
     Dosage: 4320 MILLIGRAM
     Route: 042
     Dates: start: 20190211, end: 20190617

REACTIONS (1)
  - Bone marrow toxicity [Recovering/Resolving]

NARRATIVE: CASE EVENT DATE: 20190628
